FAERS Safety Report 15207384 (Version 1)
Quarter: 2018Q3

REPORT INFORMATION
  Report Type: Spontaneous
  Country: CA (occurrence: CA)
  Receive Date: 20180727
  Receipt Date: 20180727
  Transmission Date: 20181010
  Serious: Yes (Hospitalization, Other)
  Sender: FDA-Public Use
  Company Number: CA-PFIZER INC-2018298523

PATIENT
  Age: 69 Year
  Sex: Female

DRUGS (9)
  1. PROPOFOL. [Concomitant]
     Active Substance: PROPOFOL
     Dosage: UNK
  2. ONDANSETRON [Suspect]
     Active Substance: ONDANSETRON
     Dosage: 4 MG, UNK
  3. FENTANYL CITRATE. [Suspect]
     Active Substance: FENTANYL CITRATE
     Indication: ANALGESIC THERAPY
     Dosage: 250 UG, UNK
  4. DEXAMETHASONE. [Concomitant]
     Active Substance: DEXAMETHASONE
     Dosage: UNK
  5. ROCURONIUM [Concomitant]
     Active Substance: ROCURONIUM BROMIDE
     Dosage: UNK
  6. MIDAZOLAM [Concomitant]
     Active Substance: MIDAZOLAM HYDROCHLORIDE
     Dosage: UNK
  7. NEOSTIGMINE [Concomitant]
     Active Substance: NEOSTIGMINE
     Dosage: UNK
  8. SEVOFLURANE. [Suspect]
     Active Substance: SEVOFLURANE
     Dosage: UNK
  9. LIDOCAINE. [Concomitant]
     Active Substance: LIDOCAINE
     Dosage: UNK

REACTIONS (1)
  - Respiratory distress [Recovering/Resolving]
